FAERS Safety Report 10285509 (Version 3)
Quarter: 2014Q3

REPORT INFORMATION
  Report Type: Spontaneous
  Country: BR (occurrence: BR)
  Receive Date: 20140709
  Receipt Date: 20140827
  Transmission Date: 20150326
  Serious: Yes (Other)
  Sender: FDA-Public Use
  Company Number: BR-PFIZER INC-2014185195

PATIENT
  Age: 91 Year
  Sex: Female
  Weight: 50 kg

DRUGS (14)
  1. OMEPRAZOL [Concomitant]
     Active Substance: OMEPRAZOLE
     Indication: GASTRIC ULCER
     Dosage: 1 CAPSULE, 2X/DAY
     Dates: start: 2012
  2. RIVOTRIL [Concomitant]
     Active Substance: CLONAZEPAM
     Indication: SEDATION
  3. DOMPERIDONE [Concomitant]
     Active Substance: DOMPERIDONE
     Indication: GASTRIC ULCER
     Dosage: 1 CAPSULE/DAY
     Dates: start: 2012
  4. ALOIS [Concomitant]
     Active Substance: MEMANTINE
     Indication: DEMENTIA ALZHEIMER^S TYPE
     Dosage: 1 CAPSULE, 2X/DAY
     Dates: start: 2011
  5. DIAMOX SEQUELS [Concomitant]
     Active Substance: ACETAZOLAMIDE
     Indication: GLAUCOMA
     Dosage: 1 CAPSULE/DAY
     Dates: start: 2012
  6. FOLIC ACID. [Concomitant]
     Active Substance: FOLIC ACID
     Indication: VITAMIN SUPPLEMENTATION
     Dosage: 1 CAPSULE/DAY
     Dates: start: 2013
  7. LISADOR [Concomitant]
     Active Substance: DIPYRONE\PROMETHAZINE HYDROCHLORIDE
     Indication: PAIN
     Dosage: 30 DROPS EVERY 6H
     Dates: start: 201406
  8. QUETIAPINE [Concomitant]
     Active Substance: QUETIAPINE
     Indication: DEMENTIA ALZHEIMER^S TYPE
     Dosage: 1 CAPSULE/DAY
     Dates: start: 2011
  9. VASOGARD [Concomitant]
     Active Substance: CILOSTAZOL
     Indication: ANGIOPATHY
     Dosage: 1 CAPSULE, 2X/DAY
     Dates: start: 201406
  10. XALATAN [Suspect]
     Active Substance: LATANOPROST
     Indication: GLAUCOMA
     Dosage: 3UG, 1 DROP IN EACH EYE AT NIGHT
     Route: 047
     Dates: start: 2012
  11. DAONIL [Concomitant]
     Active Substance: GLYBURIDE
     Indication: DIABETES MELLITUS
     Dosage: 1 CAPSULE/DAY
     Dates: start: 201406
  12. LEVOFLOXACINO [Concomitant]
     Indication: ISCHAEMIA
     Dosage: 1 CAPSULE/DAY
     Dates: start: 201406
  13. OMEPRAZOL [Concomitant]
     Active Substance: OMEPRAZOLE
     Indication: GASTRITIS
  14. RIVOTRIL [Concomitant]
     Active Substance: CLONAZEPAM
     Indication: DEMENTIA ALZHEIMER^S TYPE
     Dosage: 1 DROP/DAY
     Dates: start: 2011

REACTIONS (4)
  - Blister [Not Recovered/Not Resolved]
  - Diabetes mellitus [Not Recovered/Not Resolved]
  - Eschar [Recovering/Resolving]
  - Peripheral ischaemia [Unknown]

NARRATIVE: CASE EVENT DATE: 201406
